FAERS Safety Report 14799853 (Version 1)
Quarter: 2018Q2

REPORT INFORMATION
  Report Type: Report from Study
  Country: JP (occurrence: JP)
  Receive Date: 20180424
  Receipt Date: 20180424
  Transmission Date: 20180711
  Serious: Yes (Other)
  Sender: FDA-Public Use
  Company Number: JP-MYLANLABS-2018M1025767

PATIENT
  Age: 14 Year
  Sex: Male

DRUGS (4)
  1. L-ASPARAGINASE [Suspect]
     Active Substance: ASPARAGINASE
     Indication: ACUTE LYMPHOCYTIC LEUKAEMIA
     Dosage: 20000 IU/M2 ON DAYS 3,17 AND 31 (SANCTUARY)
     Route: 065
  2. L-ASPARAGINASE [Suspect]
     Active Substance: ASPARAGINASE
     Dosage: 10000 IU/M2 ON DAYS 1, 3, 5, 8, 10, 12 (RE-INDUCTION); 29, 36, 43, 85, 92, 99 (MAINTENANCE); AND ...
     Route: 065
  3. PREDNISOLONE. [Suspect]
     Active Substance: PREDNISOLONE
     Indication: ACUTE LYMPHOCYTIC LEUKAEMIA
     Dosage: SANCTUARY: 1-3, 15-17, 29-31. RE-INDUCTION: DAYS 1-14. MAINTENANCE: 29-42, 85-89. INDUCTION: 8-28.
     Route: 065
  4. DEXAMETHASONE. [Suspect]
     Active Substance: DEXAMETHASONE
     Indication: ACUTE LYMPHOCYTIC LEUKAEMIA
     Dosage: DAYS 1-7 (INDUCTION)
     Route: 065

REACTIONS (1)
  - Osteonecrosis [Recovering/Resolving]
